FAERS Safety Report 14163782 (Version 5)
Quarter: 2018Q1

REPORT INFORMATION
  Report Type: Report from Study
  Country: US (occurrence: US)
  Receive Date: 20171106
  Receipt Date: 20180118
  Transmission Date: 20180508
  Serious: Yes (Other)
  Sender: FDA-Public Use
  Company Number: US-PFIZER INC-2017432399

PATIENT
  Age: 54 Year
  Sex: Female

DRUGS (3)
  1. IBRANCE [Suspect]
     Active Substance: PALBOCICLIB
     Dosage: 100 MG, CYCLIC (DAILY, 3 WEEKS ON/1 WEEK OFF)
     Route: 048
     Dates: start: 20171222
  2. IBRANCE [Suspect]
     Active Substance: PALBOCICLIB
     Indication: BREAST CANCER
     Dosage: 125 MG, CYCLIC [DAILY, 3 WEEKS ON/1 WEEK OFF]
     Route: 048
     Dates: start: 20171001, end: 20171021
  3. IBRANCE [Suspect]
     Active Substance: PALBOCICLIB
     Dosage: 100 MG, CYCLIC (DAILY, 3 WEEKS ON/1 WEEK OFF)
     Route: 048
     Dates: start: 20171103, end: 20171212

REACTIONS (15)
  - Musculoskeletal pain [Recovering/Resolving]
  - Chest pain [Recovering/Resolving]
  - Influenza [Unknown]
  - Malaise [Unknown]
  - Cough [Unknown]
  - Fatigue [Not Recovered/Not Resolved]
  - Dry throat [Unknown]
  - Bone marrow failure [Unknown]
  - Eructation [Unknown]
  - Pruritus [Recovering/Resolving]
  - Dry skin [Recovering/Resolving]
  - Abdominal pain upper [Unknown]
  - Headache [Not Recovered/Not Resolved]
  - Nausea [Not Recovered/Not Resolved]
  - Vomiting [Unknown]

NARRATIVE: CASE EVENT DATE: 2017
